FAERS Safety Report 10007915 (Version 2)
Quarter: 2014Q1

REPORT INFORMATION
  Report Type: Spontaneous
  Country: US (occurrence: US)
  Receive Date: 20140313
  Receipt Date: 20140313
  Transmission Date: 20141002
  Serious: No
  Sender: FDA-Public Use
  Company Number: US-GILEAD-2013-0068638

PATIENT
  Sex: Male

DRUGS (1)
  1. LETAIRIS [Suspect]
     Indication: COR PULMONALE CHRONIC
     Dosage: 10 MG, QD
     Dates: start: 20121214

REACTIONS (5)
  - Syncope [Unknown]
  - Chest discomfort [Unknown]
  - Dyspnoea [Unknown]
  - Oedema peripheral [Unknown]
  - Oedema [Unknown]
